FAERS Safety Report 5335278-3 (Version None)
Quarter: 2007Q2

REPORT INFORMATION
  Report Type: 
  Country: None (occurrence: None)
  Receive Date: 20070525
  Receipt Date: 20070517
  Transmission Date: 20071010
  Serious: Yes (Hospitalization)
  Sender: FDA-Public Use
  Company Number: JP-PFIZER INC-2007033778

PATIENT
  Sex: Female
  Weight: 47 kg

DRUGS (14)
  1. SULFASALAZINE [Suspect]
     Indication: ENTEROCOLITIS
     Route: 048
     Dates: start: 20070216, end: 20070319
  2. ZITHROMAC [Suspect]
     Dosage: TEXT:2 TABLETS
     Route: 048
     Dates: start: 20070316, end: 20070318
  3. MEIACT [Suspect]
     Indication: NASOPHARYNGITIS
     Dosage: TEXT:3 TABLETS
     Route: 048
     Dates: start: 20070314, end: 20070316
  4. SOLANTAL [Suspect]
     Indication: NASOPHARYNGITIS
     Route: 048
     Dates: start: 20070314, end: 20070316
  5. ALLEGRA [Concomitant]
     Route: 048
  6. CLARITHROMYCIN [Concomitant]
     Route: 048
  7. MUCODYNE [Concomitant]
     Route: 048
  8. TRANSAMIN [Concomitant]
     Route: 048
  9. CINAL [Concomitant]
     Route: 048
  10. RISUMIC [Concomitant]
     Route: 048
  11. MAGNESIUM OXIDE [Concomitant]
     Route: 048
  12. BIOFERMIN [Concomitant]
     Route: 048
  13. HERBAL PREPARATION [Concomitant]
     Route: 048
  14. HERBAL PREPARATION [Concomitant]
     Route: 048

REACTIONS (3)
  - DRUG ERUPTION [None]
  - EOSINOPHIL COUNT INCREASED [None]
  - HEPATIC FUNCTION ABNORMAL [None]
